FAERS Safety Report 10149303 (Version 1)
Quarter: 2014Q2

REPORT INFORMATION
  Report Type: Spontaneous
  Country: GB (occurrence: GB)
  Receive Date: 20140502
  Receipt Date: 20140502
  Transmission Date: 20141212
  Serious: Yes (Life-Threatening, Hospitalization)
  Sender: FDA-Public Use
  Company Number: GB-EISAI INC-E2020-13955-SPO-GB

PATIENT
  Age: 82 Year
  Sex: Female
  Weight: 52 kg

DRUGS (6)
  1. DONEPEZIL [Suspect]
     Indication: PRODUCT USED FOR UNKNOWN INDICATION
     Route: 048
     Dates: start: 20131029, end: 20140423
  2. ALENDRONATE [Concomitant]
  3. CALCICHEW D3 [Concomitant]
  4. CLOPIDOGREL [Concomitant]
  5. PARACETAMOL [Concomitant]
  6. SIMVASTATIN [Concomitant]

REACTIONS (3)
  - Cardiac arrest [Unknown]
  - Subdural haemorrhage [Unknown]
  - Convulsion [Recovered/Resolved with Sequelae]
